FAERS Safety Report 12870305 (Version 1)
Quarter: 2016Q4

REPORT INFORMATION
  Report Type: Spontaneous
  Country: ES (occurrence: ES)
  Receive Date: 20161021
  Receipt Date: 20161021
  Transmission Date: 20170207
  Serious: Yes (Other)
  Sender: FDA-Public Use
  Company Number: ES-GLAXOSMITHKLINE-ES2016152012

PATIENT
  Age: 42 Year
  Sex: Male
  Weight: 99 kg

DRUGS (11)
  1. FOLI DOCE (FOLIC ACID, CYANOCOBALAMIN) (FOLIC ACID, CYANOCOBALAMIN) [Interacting]
     Active Substance: CYANOCOBALAMIN\FOLIC ACID
     Indication: HYPOVITAMINOSIS
     Dosage: 1 DF, QD
     Route: 048
     Dates: start: 20160506
  2. TRAZODONE HYDROCHLORIDE. [Interacting]
     Active Substance: TRAZODONE HYDROCHLORIDE
     Indication: INSOMNIA
     Dosage: 100 MG, QD
     Route: 048
     Dates: start: 20121219
  3. NOIAFREN [Concomitant]
     Active Substance: CLOBAZAM
     Indication: EPILEPSY
     Dosage: 15 MG-0-20
     Route: 048
     Dates: start: 20080813
  4. LISINOPRIL SANDOZ [Interacting]
     Active Substance: LISINOPRIL
     Indication: HYPERTENSION
     Dosage: 10 MG, QD
     Route: 048
     Dates: start: 20160712, end: 20160724
  5. SECALIP SUPRA [Concomitant]
     Indication: HYPERLIPIDAEMIA
     Dosage: 160 MG, QD
     Route: 048
     Dates: start: 20160129
  6. TROBALT [Suspect]
     Active Substance: EZOGABINE
     Indication: EPILEPSY
     Dosage: 300 MG, TID
     Route: 048
     Dates: start: 20091113
  7. TEGRETOL [Interacting]
     Active Substance: CARBAMAZEPINE
     Indication: EPILEPSY
     Dosage: 400 MG, TID
     Route: 048
     Dates: start: 20141218
  8. LISINOPRIL SANDOZ [Interacting]
     Active Substance: LISINOPRIL
     Dosage: UNK
     Route: 065
     Dates: start: 20160808
  9. EZETROL [Concomitant]
     Active Substance: EZETIMIBE
     Indication: HYPERCHOLESTEROLAEMIA
     Dosage: 10 MG, QD
     Route: 048
     Dates: start: 20160329
  10. LUMINAL (PHENOBARBITAL) [Interacting]
     Active Substance: PHENOBARBITAL SODIUM
     Indication: EPILEPSY
     Dosage: 100 MG, QD
     Route: 048
     Dates: start: 20160329
  11. OMEPRAZOL CINFA [Concomitant]
     Indication: HYPERCHLORHYDRIA
     Dosage: 20 MG, BID
     Route: 048
     Dates: start: 20040615

REACTIONS (2)
  - Malaise [Recovered/Resolved]
  - Epilepsy [Recovered/Resolved]

NARRATIVE: CASE EVENT DATE: 20160712
